FAERS Safety Report 6806201-7 (Version None)
Quarter: 2010Q2

REPORT INFORMATION
  Report Type: 
  Country: None (occurrence: None)
  Receive Date: 20100629
  Receipt Date: 20100624
  Transmission Date: 20101027
  Serious: Yes (Hospitalization)
  Sender: FDA-Public Use
  Company Number: US-MERCK-1006USA00757

PATIENT
  Age: 74 Year
  Sex: Male

DRUGS (9)
  1. HYZAAR [Suspect]
     Route: 048
     Dates: start: 20100501, end: 20100101
  2. HYZAAR [Suspect]
     Indication: HYPERTENSION
     Route: 048
     Dates: end: 20100501
  3. HYZAAR [Suspect]
     Route: 048
     Dates: start: 20100101
  4. DIGOXIN [Concomitant]
     Route: 065
  5. WARFARIN [Concomitant]
     Route: 065
  6. CRESTOR [Concomitant]
     Route: 065
  7. VERAPAMIL [Concomitant]
     Route: 065
  8. HYZAAR [Suspect]
     Indication: FLUID RETENTION
     Route: 048
     Dates: end: 20100501
  9. HYZAAR [Suspect]
     Route: 048
     Dates: start: 20100101

REACTIONS (6)
  - DRY MOUTH [None]
  - DRY THROAT [None]
  - LOGORRHOEA [None]
  - PRODUCT SUBSTITUTION ISSUE [None]
  - SALIVARY GLAND DISORDER [None]
  - SWELLING FACE [None]
